APPROVED DRUG PRODUCT: CRIXIVAN
Active Ingredient: INDINAVIR SULFATE
Strength: EQ 333MG BASE
Dosage Form/Route: CAPSULE;ORAL
Application: N020685 | Product #005
Applicant: MERCK SHARP AND DOHME CORP
Approved: Dec 17, 1998 | RLD: No | RS: No | Type: DISCN